FAERS Safety Report 23723901 (Version 4)
Quarter: 2024Q2

REPORT INFORMATION
  Report Type: Spontaneous
  Country: PL (occurrence: PL)
  Receive Date: 20240409
  Receipt Date: 20240606
  Transmission Date: 20240716
  Serious: Yes (Hospitalization, Other)
  Sender: FDA-Public Use
  Company Number: PL-BoehringerIngelheim-2024-BI-020476

PATIENT
  Age: 75 Year
  Sex: Male
  Weight: 93 kg

DRUGS (14)
  1. DABIGATRAN [Suspect]
     Active Substance: DABIGATRAN
     Indication: Atrial fibrillation
  2. NINTEDANIB [Suspect]
     Active Substance: NINTEDANIB
     Indication: Idiopathic pulmonary fibrosis
     Dosage: THE BATCH NUMBER OF THE DRUG COULD NOT BE RETRIEVED.
     Dates: start: 20220914, end: 20240312
  3. NINTEDANIB [Suspect]
     Active Substance: NINTEDANIB
     Dosage: BREAK IN THE USE OF NINTEDANIB DUE TO PLEURAL DRAINAGE: MARCH 12-18, 2024
     Dates: start: 20240319
  4. LEVOTHYROXINE SODIUM [Concomitant]
     Active Substance: LEVOTHYROXINE SODIUM
     Indication: Product used for unknown indication
  5. RAMIPRIL [Concomitant]
     Active Substance: RAMIPRIL
     Indication: Product used for unknown indication
  6. NEBIVOLOL [Concomitant]
     Active Substance: NEBIVOLOL
     Indication: Product used for unknown indication
  7. SPIRONOLACTONE [Concomitant]
     Active Substance: SPIRONOLACTONE
     Indication: Product used for unknown indication
  8. TORSEMIDE [Concomitant]
     Active Substance: TORSEMIDE
     Indication: Product used for unknown indication
  9. POTASSIUM [Concomitant]
     Active Substance: POTASSIUM
     Indication: Product used for unknown indication
  10. LUCETAM [Concomitant]
     Indication: Product used for unknown indication
  11. NILOGRIN [Concomitant]
     Indication: Product used for unknown indication
  12. ALLOPURINOL [Concomitant]
     Active Substance: ALLOPURINOL
     Indication: Product used for unknown indication
  13. METFORMIN HYDROCHLORIDE [Concomitant]
     Active Substance: METFORMIN HYDROCHLORIDE
     Indication: Product used for unknown indication
  14. CARDURA [Concomitant]
     Active Substance: DOXAZOSIN MESYLATE
     Indication: Product used for unknown indication

REACTIONS (2)
  - Idiopathic pulmonary fibrosis [Unknown]
  - Pneumothorax spontaneous [Recovered/Resolved]

NARRATIVE: CASE EVENT DATE: 20240101
